FAERS Safety Report 18680946 (Version 1)
Quarter: 2020Q4

REPORT INFORMATION
  Report Type: Spontaneous
  Country: NL (occurrence: NL)
  Receive Date: 20201229
  Receipt Date: 20201229
  Transmission Date: 20210114
  Serious: Yes (Other)
  Sender: FDA-Public Use
  Company Number: NL-JAZZ-2020-NL-017827

PATIENT
  Age: 65 Year
  Sex: Female
  Weight: 53 kg

DRUGS (3)
  1. GRANISETRONE [Concomitant]
     Indication: PRODUCT USED FOR UNKNOWN INDICATION
     Dosage: UNK
     Route: 042
     Dates: start: 20201008, end: 20201008
  2. DEXAMETHASONE. [Concomitant]
     Active Substance: DEXAMETHASONE
     Indication: PRODUCT USED FOR UNKNOWN INDICATION
     Dosage: UNK
     Route: 042
     Dates: start: 20201008, end: 20201008
  3. ZEPZELCA [Suspect]
     Active Substance: LURBINECTEDIN
     Indication: SMALL CELL LUNG CANCER
     Dosage: 5 MILLIGRAM
     Route: 042
     Dates: start: 20201008, end: 20201008

REACTIONS (1)
  - Vascular pain [Unknown]
